FAERS Safety Report 16528056 (Version 1)
Quarter: 2019Q3

REPORT INFORMATION
  Report Type: Spontaneous
  Country: CA (occurrence: CA)
  Receive Date: 20190704
  Receipt Date: 20190704
  Transmission Date: 20191004
  Serious: Yes (Other)
  Sender: FDA-Public Use
  Company Number: CA-TEVA-2019-CA-1070720

PATIENT
  Age: 47 Month
  Weight: 74 kg

DRUGS (1)
  1. PAROXETINE HYDROCHLORIDE. [Suspect]
     Active Substance: PAROXETINE HYDROCHLORIDE
     Indication: ANXIETY
     Dosage: 30 MILLIGRAM DAILY;
     Route: 048

REACTIONS (3)
  - Economic problem [Recovering/Resolving]
  - Pain [Recovering/Resolving]
  - Withdrawal syndrome [Recovering/Resolving]
